FAERS Safety Report 5794177-3 (Version None)
Quarter: 2008Q2

REPORT INFORMATION
  Report Type: 
  Country: None (occurrence: None)
  Receive Date: 20080627
  Receipt Date: 20080617
  Transmission Date: 20081010
  Serious: Yes (Other)
  Sender: FDA-Public Use
  Company Number: ES-PFIZER INC-2008050729

PATIENT
  Age: 39 Year
  Sex: Female

DRUGS (1)
  1. LYRICA [Suspect]
     Indication: NEURALGIA
     Route: 048
     Dates: start: 20080202, end: 20080202

REACTIONS (5)
  - DIZZINESS [None]
  - DYSPNOEA [None]
  - FACIAL PAIN [None]
  - SENSORY LOSS [None]
  - VISION BLURRED [None]
